FAERS Safety Report 9080579 (Version 1)
Quarter: 2013Q1

REPORT INFORMATION
  Report Type: Report from Study
  Country: US (occurrence: US)
  Receive Date: 20130130
  Receipt Date: 20130130
  Transmission Date: 20140127
  Serious: No
  Sender: FDA-Public Use
  Company Number: US-ABBOTT-12P-163-0974452-00

PATIENT
  Sex: Female
  Weight: 60.84 kg

DRUGS (8)
  1. HUMIRA 40 MG/0.8 ML PEN [Suspect]
     Indication: RHEUMATOID ARTHRITIS
     Route: 058
     Dates: start: 201205
  2. ZOLOFT [Concomitant]
     Indication: DEPRESSION
  3. PLAQUENIL [Concomitant]
     Indication: RHEUMATOID ARTHRITIS
  4. METHOTREXATE [Concomitant]
     Indication: RHEUMATOID ARTHRITIS
  5. HORMONE REPLACEMENT [Concomitant]
     Indication: MENOPAUSE
  6. AMBIEN [Concomitant]
     Indication: INSOMNIA
  7. CARISOPRODOL [Concomitant]
     Indication: MUSCLE SPASMS
  8. FOLIC ACID [Concomitant]
     Indication: VITAMIN SUPPLEMENTATION

REACTIONS (1)
  - Sinus headache [Not Recovered/Not Resolved]
